FAERS Safety Report 7305547-6 (Version None)
Quarter: 2011Q1

REPORT INFORMATION
  Report Type: 
  Country: None (occurrence: None)
  Receive Date: 20110222
  Receipt Date: 20110215
  Transmission Date: 20110831
  Serious: Yes (Hospitalization)
  Sender: FDA-Public Use
  Company Number: US-SANOFI-AVENTIS-2011SA010239

PATIENT
  Sex: Female

DRUGS (2)
  1. DABIGATRAN [Suspect]
     Route: 065
  2. MULTAQ [Suspect]
     Route: 065

REACTIONS (4)
  - LIVER FUNCTION TEST ABNORMAL [None]
  - CARDIAC FAILURE [None]
  - INTERNATIONAL NORMALISED RATIO INCREASED [None]
  - BLOOD CREATININE INCREASED [None]
